FAERS Safety Report 7759243-1 (Version None)
Quarter: 2011Q3

REPORT INFORMATION
  Report Type: 
  Country: None (occurrence: None)
  Receive Date: 20110919
  Receipt Date: 20110915
  Transmission Date: 20111222
  Serious: Yes (Death)
  Sender: FDA-Public Use
  Company Number: CN-SANOFI-AVENTIS-2011SA059960

PATIENT
  Age: 65 Year
  Sex: Male

DRUGS (2)
  1. OXALIPLATIN [Suspect]
     Dosage: DOSE:3 UNIT(S)
     Route: 042
     Dates: start: 20110901, end: 20110901
  2. OXALIPLATIN [Suspect]
     Dosage: DOSE:3 UNIT(S)
     Route: 042
     Dates: start: 20110101, end: 20110801

REACTIONS (5)
  - DEATH [None]
  - PRODUCT QUALITY ISSUE [None]
  - PRODUCT COUNTERFEIT [None]
  - ABDOMINAL PAIN UPPER [None]
  - LOSS OF CONSCIOUSNESS [None]
